FAERS Safety Report 22208674 (Version 1)
Quarter: 2023Q2

REPORT INFORMATION
  Report Type: Spontaneous
  Country: None (occurrence: FR)
  Receive Date: 20230413
  Receipt Date: 20230413
  Transmission Date: 20230721
  Serious: Yes (Life-Threatening)
  Sender: FDA-Public Use
  Company Number: FR-Canton Laboratories, LLC-2140290

PATIENT
  Sex: Male

DRUGS (1)
  1. NAPROSYN [Suspect]
     Active Substance: NAPROXEN
     Indication: Pain
     Route: 048

REACTIONS (2)
  - Pneumococcal sepsis [Recovering/Resolving]
  - Renal tubular necrosis [Recovered/Resolved]
